FAERS Safety Report 11246772 (Version 1)
Quarter: 2015Q3

REPORT INFORMATION
  Report Type: Spontaneous
  Country: US (occurrence: None)
  Receive Date: 20150706
  Receipt Date: 20150706
  Transmission Date: 20151125
  Serious: No
  Sender: FDA-Public Use
  Company Number: None

PATIENT
  Age: 1 Month
  Sex: Female
  Weight: 3.63 kg

DRUGS (1)
  1. LITTLE REMEDIES GAS RELIEF DROPS [Suspect]
     Active Substance: DIMETHICONE
     Indication: IRRITABILITY
     Dosage: 03-1 AS NEEDED TAKEN BY MOUTH
     Route: 048
     Dates: start: 20150520, end: 20150701

REACTIONS (1)
  - Hypersomnia [None]

NARRATIVE: CASE EVENT DATE: 20150701
